FAERS Safety Report 4400009-8 (Version None)
Quarter: 2004Q3

REPORT INFORMATION
  Report Type: 
  Country: None (occurrence: None)
  Receive Date: 20040714
  Receipt Date: 20040701
  Transmission Date: 20050211
  Serious: Yes (Hospitalization)
  Sender: FDA-Public Use
  Company Number: 2004PK01158

PATIENT
  Age: 69 Year
  Sex: Female
  Weight: 64 kg

DRUGS (9)
  1. METOPROLOL TARTRATE [Suspect]
     Indication: HYPERTENSION
     Dosage: 23.75 MG DAILY PO
     Route: 048
     Dates: start: 19980101, end: 20040323
  2. DIGITOXIN TAB [Suspect]
     Indication: ATRIAL FIBRILLATION
     Dosage: 0.07 MG DAILY PO
     Route: 048
     Dates: start: 20000101, end: 20040323
  3. ACTRAPHANE HM [Concomitant]
  4. EUNERPAN [Concomitant]
  5. FRAXIPARIN [Concomitant]
  6. LACRISIC [Concomitant]
  7. LASIX [Concomitant]
  8. NOVALGIN [Concomitant]
  9. TRAMADOL HCL [Concomitant]

REACTIONS (2)
  - DRUG INTERACTION [None]
  - SINUS BRADYCARDIA [None]
